FAERS Safety Report 5185076-9 (Version None)
Quarter: 2006Q4

REPORT INFORMATION
  Report Type: 
  Country: None (occurrence: None)
  Receive Date: 20061220
  Receipt Date: 20060530
  Transmission Date: 20070319
  Serious: No
  Sender: FDA-Public Use
  Company Number: US-GLAXOSMITHKLINE-A0607190A

PATIENT
  Age: 65 Year
  Sex: Female

DRUGS (1)
  1. NICODERM CQ [Suspect]

REACTIONS (7)
  - AGITATION [None]
  - APPLICATION SITE IRRITATION [None]
  - APPLICATION SITE PRURITUS [None]
  - BOREDOM [None]
  - MOUTH ULCERATION [None]
  - NERVOUSNESS [None]
  - TONGUE ULCERATION [None]
